FAERS Safety Report 7240636-6 (Version None)
Quarter: 2011Q1

REPORT INFORMATION
  Report Type: 
  Country: None (occurrence: None)
  Receive Date: 20110124
  Receipt Date: 20100624
  Transmission Date: 20110831
  Serious: Yes (Death)
  Sender: FDA-Public Use
  Company Number: US-KINGPHARMUSA00001-K201000809

PATIENT
  Sex: Male

DRUGS (2)
  1. EPIPEN [Suspect]
     Indication: ANAPHYLACTIC SHOCK
     Dosage: 0.3 MG, SINGLE
     Route: 030
     Dates: start: 20100620, end: 20100620
  2. EPIPEN [Suspect]
     Indication: ALLERGY TO ARTHROPOD STING

REACTIONS (1)
  - DRUG INEFFECTIVE [None]
